FAERS Safety Report 8479820 (Version 3)
Quarter: 2012Q4

REPORT INFORMATION
  Report Type: 
  Country: US (occurrence: US)
  Receive Date: 20120328
  Receipt Date: 20120917
  Transmission Date: 20130627
  Serious: Yes (Hospitalization, Other)
  Sender: FDA-Public Use
  Company Number: US-BAYER-2012-029450

PATIENT
  Age: 34 Year
  Sex: Female
  Weight: 52.15 kg

DRUGS (5)
  1. YAZ [Suspect]
     Indication: CONTRACEPTION
     Dosage: UNK
     Dates: start: 200808, end: 200810
  2. YAZ [Suspect]
     Indication: PREMENSTRUAL SYNDROME
  3. LEXAPRO [Concomitant]
     Indication: ANXIETY
     Dosage: UNK
     Dates: start: 2008, end: 2009
  4. IBUPROFEN [Concomitant]
     Dosage: 800 mg, UNK
  5. AMOXICILLIN [Concomitant]
     Dosage: 250 mg, UNK

REACTIONS (4)
  - Cerebrovascular accident [None]
  - Abortion spontaneous [None]
  - Pain [None]
  - Anxiety [None]
